FAERS Safety Report 4883799-X (Version None)
Quarter: 2006Q1

REPORT INFORMATION
  Report Type: 
  Country: None (occurrence: None)
  Receive Date: 20060113
  Receipt Date: 20051229
  Transmission Date: 20060701
  Serious: Yes (Death)
  Sender: FDA-Public Use
  Company Number: US200512000750

PATIENT
  Age: 16 Year
  Sex: Male

DRUGS (1)
  1. STRATTERA [Suspect]
     Indication: ATTENTION DEFICIT/HYPERACTIVITY DISORDER
     Dosage: 40 MG DAILY (1/D)
     Route: 048
     Dates: start: 20050429

REACTIONS (5)
  - ALCOHOL USE [None]
  - COMPLETED SUICIDE [None]
  - DRUG ABUSER [None]
  - GUN SHOT WOUND [None]
  - INTENTIONAL SELF-INJURY [None]
